FAERS Safety Report 7078435-0 (Version None)
Quarter: 2010Q4

REPORT INFORMATION
  Report Type: 
  Country: None (occurrence: None)
  Receive Date: 20101102
  Receipt Date: 20101019
  Transmission Date: 20110411
  Serious: No
  Sender: FDA-Public Use
  Company Number: US-JNJFOC-20101005649

PATIENT
  Sex: Female

DRUGS (2)
  1. INVEGA SUSTENNA [Suspect]
     Indication: ILL-DEFINED DISORDER
     Route: 030
  2. INVEGA SUSTENNA [Suspect]
     Route: 030

REACTIONS (3)
  - DRUG ADMINISTERED AT INAPPROPRIATE SITE [None]
  - INJECTION SITE MASS [None]
  - INJECTION SITE PAIN [None]
